FAERS Safety Report 15689705 (Version 2)
Quarter: 2018Q4

REPORT INFORMATION
  Report Type: Spontaneous
  Country: US (occurrence: US)
  Receive Date: 20181205
  Receipt Date: 20181205
  Transmission Date: 20190205
  Serious: Yes (Life-Threatening)
  Sender: FDA-Public Use
  Company Number: US-NOVOPROD-596728

PATIENT
  Age: 64 Year
  Sex: Male
  Weight: 130 kg

DRUGS (5)
  1. NOVOLIN R [Suspect]
     Active Substance: INSULIN HUMAN
     Dosage: 20 U, TID WITH DINNER
     Route: 065
     Dates: start: 20180317, end: 20180317
  2. NOVOLIN R [Suspect]
     Active Substance: INSULIN HUMAN
     Indication: TYPE 2 DIABETES MELLITUS
     Dosage: 20 U, TID WITH MEALS
     Route: 065
     Dates: start: 201601
  3. NOVOLIN R [Suspect]
     Active Substance: INSULIN HUMAN
     Dosage: 20 U, TID WITH MEALS
     Route: 065
     Dates: start: 20180318
  4. METFORMIN [Concomitant]
     Active Substance: METFORMIN HYDROCHLORIDE
     Indication: TYPE 2 DIABETES MELLITUS
     Dosage: 1000 MG, BID
     Route: 065
     Dates: start: 20171219
  5. NOVOLIN N [Suspect]
     Active Substance: INSULIN HUMAN
     Indication: TYPE 2 DIABETES MELLITUS
     Dosage: 70 U, QD  IN THE EVENING AT BEDTIME
     Route: 065
     Dates: start: 201601

REACTIONS (2)
  - Inappropriate schedule of product administration [Unknown]
  - Hypoglycaemic unconsciousness [Recovered/Resolved]

NARRATIVE: CASE EVENT DATE: 20180317
